FAERS Safety Report 24118320 (Version 1)
Quarter: 2024Q3

REPORT INFORMATION
  Report Type: Spontaneous
  Country: JP (occurrence: JP)
  Receive Date: 20240722
  Receipt Date: 20240722
  Transmission Date: 20241017
  Serious: Yes (Other)
  Sender: MERCK
  Company Number: JP-009507513-2407JPN008934

PATIENT
  Age: 61 Year
  Sex: Male

DRUGS (2)
  1. GRAZOPREVIR [Suspect]
     Active Substance: GRAZOPREVIR
     Indication: Hepatitis C
     Dosage: 100 MILLIGRAM, QD
     Route: 048
  2. ELBASVIR [Suspect]
     Active Substance: ELBASVIR
     Indication: Hepatitis C
     Dosage: 50 MILLIGRAM, QD
     Route: 048

REACTIONS (3)
  - Neoplasm malignant [Unknown]
  - Hepatectomy [Unknown]
  - Cholecystectomy [Unknown]

NARRATIVE: CASE EVENT DATE: 20180101
